FAERS Safety Report 4961571-X (Version None)
Quarter: 2006Q1

REPORT INFORMATION
  Report Type: 
  Country: None (occurrence: None)
  Receive Date: 20060329
  Receipt Date: 20060316
  Transmission Date: 20060701
  Serious: No
  Sender: FDA-Public Use
  Company Number: TAP2005Q02109

PATIENT
  Age: 81 Year
  Sex: Male

DRUGS (8)
  1. LUPRON DEPOT-4 [Suspect]
     Indication: PROSTATE CANCER
     Dosage: 30 MG, 1 IN 4 M, INTRAMUSCULAR
     Route: 030
     Dates: start: 20050804
  2. GEN NITRO (GLYCERYL TRINITRATE) [Concomitant]
  3. PANTOLOC (PANTOPRAZOLE) [Concomitant]
  4. NOVO PINDOL (PINDOLOL) [Concomitant]
  5. NOVO DILTIAZEM (DILTIAZEM) [Concomitant]
  6. DETROL [Concomitant]
  7. CASODEX [Concomitant]
  8. NITRO DUR PATCH (GLYCERYL TRINITRATE) [Concomitant]

REACTIONS (3)
  - CATARACT [None]
  - PAIN IN EXTREMITY [None]
  - PERIPHERAL ARTERIAL OCCLUSIVE DISEASE [None]
